FAERS Safety Report 21748987 (Version 1)
Quarter: 2022Q4

REPORT INFORMATION
  Report Type: Spontaneous
  Country: US (occurrence: None)
  Receive Date: 20221217
  Receipt Date: 20221217
  Transmission Date: 20230112
  Serious: Yes (Life-Threatening, Hospitalization)
  Sender: FDA-Public Use
  Company Number: None

PATIENT
  Age: 6 Year
  Sex: Female
  Weight: 17.24 kg

DRUGS (7)
  1. TREPROSTINIL [Suspect]
     Active Substance: TREPROSTINIL
  2. TYLENOL [Concomitant]
     Active Substance: ACETAMINOPHEN
  3. IBUPROFEN [Concomitant]
     Active Substance: IBUPROFEN
  4. BENADRYL [Concomitant]
     Active Substance: DIPHENHYDRAMINE HYDROCHLORIDE
  5. ZYRTEC [Concomitant]
     Active Substance: CETIRIZINE HYDROCHLORIDE
  6. amresentin [Concomitant]
  7. TADALAFIL [Concomitant]
     Active Substance: TADALAFIL

REACTIONS (8)
  - Loss of consciousness [None]
  - Dyspnoea [None]
  - Lethargy [None]
  - Pallor [None]
  - Syncope [None]
  - Visual impairment [None]
  - Fall [None]
  - Device malfunction [None]

NARRATIVE: CASE EVENT DATE: 20221107
